FAERS Safety Report 4679497-8 (Version None)
Quarter: 2005Q2

REPORT INFORMATION
  Report Type: 
  Country: None (occurrence: None)
  Receive Date: 20050602
  Receipt Date: 20050503
  Transmission Date: 20051028
  Serious: Yes (Life-Threatening, Hospitalization, Other)
  Sender: FDA-Public Use
  Company Number: US-MERCK-0505USA00526

PATIENT
  Age: 32 Year
  Sex: Female

DRUGS (6)
  1. MAXALT [Suspect]
     Indication: MIGRAINE
     Route: 048
     Dates: start: 20031101, end: 20050420
  2. HORMONAL CONTRACEPTIVES (UNSPECIFIED) [Concomitant]
     Route: 065
  3. NAPROSYN [Concomitant]
     Indication: ARTHRALGIA
     Route: 065
  4. CODEINE [Concomitant]
     Indication: MIGRAINE
     Route: 065
  5. CODEINE [Concomitant]
     Indication: HEADACHE
     Route: 065
  6. [THERAPY UNSPECIFIED] [Concomitant]
     Route: 065

REACTIONS (4)
  - ACUTE CORONARY SYNDROME [None]
  - CARDIAC MURMUR [None]
  - HEADACHE [None]
  - MYOCARDIAL INFARCTION [None]
